FAERS Safety Report 24292663 (Version 1)
Quarter: 2024Q3

REPORT INFORMATION
  Report Type: Spontaneous
  Country: CN (occurrence: CN)
  Receive Date: 20240906
  Receipt Date: 20240906
  Transmission Date: 20241016
  Serious: Yes (Hospitalization, Disabling)
  Sender: JOHNSON AND JOHNSON
  Company Number: CN-JNJFOC-20240900972

PATIENT
  Age: 21 Year
  Sex: Male
  Weight: 80 kg

DRUGS (2)
  1. TOPAMAX [Suspect]
     Active Substance: TOPIRAMATE
     Indication: Hepatic function abnormal
     Route: 048
     Dates: start: 20230901, end: 20240725
  2. TOPAMAX [Suspect]
     Active Substance: TOPIRAMATE
     Indication: Partial seizures

REACTIONS (2)
  - Electroencephalogram [Unknown]
  - Liver function test abnormal [Unknown]

NARRATIVE: CASE EVENT DATE: 20240724
